FAERS Safety Report 10590679 (Version 3)
Quarter: 2015Q1

REPORT INFORMATION
  Report Type: Spontaneous
  Country: US (occurrence: US)
  Receive Date: 20141118
  Receipt Date: 20150210
  Transmission Date: 20150720
  Serious: No
  Sender: FDA-Public Use
  Company Number: US-GLAXOSMITHKLINE-A1088417A

PATIENT

DRUGS (1)
  1. ALLI [Suspect]
     Active Substance: ORLISTAT
     Indication: CONSTIPATION
     Route: 048

REACTIONS (7)
  - Drug ineffective [Unknown]
  - Malaise [Not Recovered/Not Resolved]
  - Proctalgia [Not Recovered/Not Resolved]
  - Drug administration error [Unknown]
  - Ageusia [Not Recovered/Not Resolved]
  - Product quality issue [Unknown]
  - Decreased appetite [Not Recovered/Not Resolved]

NARRATIVE: CASE EVENT DATE: 201408
